FAERS Safety Report 12676590 (Version 10)
Quarter: 2024Q1

REPORT INFORMATION
  Report Type: Spontaneous
  Country: US (occurrence: US)
  Receive Date: 20160823
  Receipt Date: 20240301
  Transmission Date: 20240409
  Serious: No
  Sender: FDA-Public Use
  Company Number: US-PFIZER INC-2016396739

PATIENT
  Age: 67 Year
  Sex: Female

DRUGS (6)
  1. IBRANCE [Suspect]
     Active Substance: PALBOCICLIB
     Indication: Breast cancer metastatic
     Dosage: ONCE DAILY WHOLE WITH WATER AND FOOD FOR 21DAYS, 7 DAYS OFF AT APPROXIMATELY THE SAME TIME EACH DAY
     Route: 048
     Dates: start: 20160801
  2. LEVOFLOXACIN [Concomitant]
     Active Substance: LEVOFLOXACIN
     Dosage: 500 MG, UNK
  3. FASLODEX [Concomitant]
     Active Substance: FULVESTRANT
     Dosage: 250 MG
  4. ALEVE [Concomitant]
     Active Substance: NAPROXEN SODIUM
     Dosage: 220 MG, UNK
  5. VITAMIN D [Concomitant]
     Active Substance: VITAMIN D NOS
     Dosage: 50000 IU, UNK
  6. LEVOTHYROXINE [Concomitant]
     Active Substance: LEVOTHYROXINE\LEVOTHYROXINE SODIUM
     Dosage: 75 UG, UNK

REACTIONS (9)
  - Fatigue [Not Recovered/Not Resolved]
  - White blood cell count abnormal [Unknown]
  - Nasopharyngitis [Unknown]
  - White blood cell count increased [Unknown]
  - Arthralgia [Unknown]
  - Pain [Not Recovered/Not Resolved]
  - Abdominal pain [Unknown]
  - Swelling [Unknown]
  - Vomiting [Unknown]

NARRATIVE: CASE EVENT DATE: 20170301
